FAERS Safety Report 5671327-0 (Version None)
Quarter: 2008Q1

REPORT INFORMATION
  Report Type: 
  Country: None (occurrence: None)
  Receive Date: 20080318
  Receipt Date: 20080306
  Transmission Date: 20080703
  Serious: Yes (Hospitalization, Other)
  Sender: FDA-Public Use
  Company Number: US-PFIZER INC-2007099488

PATIENT
  Sex: Female
  Weight: 67.1 kg

DRUGS (10)
  1. ZOLOFT [Suspect]
     Indication: DEPRESSION
     Route: 048
     Dates: start: 20061006, end: 20061029
  2. ZOLOFT [Suspect]
     Indication: ANXIETY
  3. ZOLOFT [Suspect]
     Indication: OBSESSIVE-COMPULSIVE DISORDER
  4. ABILIFY [Suspect]
  5. CELEXA [Suspect]
     Indication: OBSESSIVE-COMPULSIVE DISORDER
  6. KLONOPIN [Concomitant]
  7. BUSPAR [Concomitant]
  8. WELLBUTRIN XL [Concomitant]
  9. FLONASE [Concomitant]
     Route: 055
  10. VITAMIN CAP [Concomitant]

REACTIONS (24)
  - APHASIA [None]
  - ASTHENIA [None]
  - BALANCE DISORDER [None]
  - BLOOD PRESSURE INCREASED [None]
  - BODY MASS INDEX INCREASED [None]
  - CARPAL TUNNEL SYNDROME [None]
  - CENTRAL NERVOUS SYSTEM STIMULATION [None]
  - CEREBRAL VENOUS THROMBOSIS [None]
  - CONVERSION DISORDER [None]
  - DRUG INTOLERANCE [None]
  - EXTRAPYRAMIDAL DISORDER [None]
  - HEADACHE [None]
  - MYOCLONUS [None]
  - NASAL MUCOSAL DISORDER [None]
  - PARAESTHESIA [None]
  - PARALYSIS [None]
  - PARKINSONISM [None]
  - PHOTOPHOBIA [None]
  - SEROTONIN SYNDROME [None]
  - SPEECH DISORDER [None]
  - STRESS [None]
  - TANGENTIALITY [None]
  - TIC [None]
  - VISION BLURRED [None]
